FAERS Safety Report 21329159 (Version 3)
Quarter: 2022Q4

REPORT INFORMATION
  Report Type: Spontaneous
  Country: CO (occurrence: CO)
  Receive Date: 20220913
  Receipt Date: 20221102
  Transmission Date: 20230113
  Serious: Yes (Other)
  Sender: FDA-Public Use
  Company Number: CO-PFIZER INC-PV202200059291

PATIENT
  Age: 56 Year
  Sex: Male

DRUGS (1)
  1. PIPERACILLIN SODIUM\TAZOBACTAM SODIUM [Suspect]
     Active Substance: PIPERACILLIN SODIUM\TAZOBACTAM SODIUM
     Dosage: 4.5 G, 4X/DAY (EVERY 6 HOURS FOR 7 DAYS)

REACTIONS (9)
  - Pneumonia aspiration [Unknown]
  - Klebsiella infection [Unknown]
  - Beta haemolytic streptococcal infection [Unknown]
  - Depressed level of consciousness [Unknown]
  - Oxygen saturation decreased [Unknown]
  - Drug ineffective [Unknown]
  - Vomiting [Unknown]
  - Pyrexia [Unknown]
  - Polymerase chain reaction positive [Unknown]

NARRATIVE: CASE EVENT DATE: 20220808
